FAERS Safety Report 16184572 (Version 9)
Quarter: 2020Q2

REPORT INFORMATION
  Report Type: Spontaneous
  Country: US (occurrence: US)
  Receive Date: 20190411
  Receipt Date: 20200602
  Transmission Date: 20200713
  Serious: Yes (Hospitalization, Disabling, Other)
  Sender: FDA-Public Use
  Company Number: US-PFIZER INC-2019146397

PATIENT
  Age: 17 Year
  Sex: Male
  Weight: 83.91 kg

DRUGS (12)
  1. ASPIRIN [ACETYLSALICYLIC ACID] [Concomitant]
     Active Substance: ASPIRIN
     Dosage: UNK
     Dates: start: 2018
  2. CLOPIDOGREL [Concomitant]
     Active Substance: CLOPIDOGREL BISULFATE
     Indication: BLOOD CHOLESTEROL ABNORMAL
     Dosage: 75 MG, 1X/DAY
     Dates: start: 2018
  3. DILANTIN [Suspect]
     Active Substance: PHENYTOIN
     Indication: SEIZURE
     Dosage: 400 MG, 1X/DAY [BEDTIME]
     Route: 048
  4. LISINOPRIL. [Concomitant]
     Active Substance: LISINOPRIL
     Dosage: UNK
     Dates: start: 2018
  5. FINASTERIDE. [Concomitant]
     Active Substance: FINASTERIDE
     Indication: PROSTATOMEGALY
     Dosage: 5 MG, 1X/DAY
     Dates: start: 2000
  6. DILANTIN [Suspect]
     Active Substance: PHENYTOIN
     Dosage: 400 MG, 1X/DAY (FOUR 100 MG CAPSULES AT BEDTIME)
  7. ALENDRONATE SODIUM. [Concomitant]
     Active Substance: ALENDRONATE SODIUM
     Indication: OSTEOPOROSIS
     Dosage: 70 MG, UNK (PRESCRIBED TO TAKE ONCE A WEEK, BUT TAKES ONCE EVERY OTHER WEEK)
     Dates: start: 2018
  8. LISINOPRIL. [Concomitant]
     Active Substance: LISINOPRIL
     Indication: HYPERTENSION
     Dosage: 20 MG, 1X/DAY
     Route: 048
     Dates: start: 2000
  9. PHENOBARBITAL. [Concomitant]
     Active Substance: PHENOBARBITAL
     Indication: SEIZURE
     Dosage: TWO 62.4 MG AT BEDTIME
     Dates: start: 1967
  10. ASPIRIN [ACETYLSALICYLIC ACID] [Concomitant]
     Active Substance: ASPIRIN
     Indication: ANTICOAGULANT THERAPY
     Dosage: 81 MG, 1X/DAY [BEDTIME]
     Dates: start: 2016
  11. DILANTIN [Suspect]
     Active Substance: PHENYTOIN
     Dosage: 100 MG, 4X/DAY
     Dates: start: 1967
  12. ATORVASTATIN [Concomitant]
     Active Substance: ATORVASTATIN
     Dosage: 80 MG, 1X/DAY
     Route: 048
     Dates: start: 2018

REACTIONS (16)
  - Fall [Unknown]
  - Tooth disorder [Unknown]
  - Cerebrovascular accident [Recovered/Resolved]
  - Hypoacusis [Not Recovered/Not Resolved]
  - Visual impairment [Unknown]
  - Cognitive disorder [Unknown]
  - Guillain-Barre syndrome [Not Recovered/Not Resolved]
  - Drug ineffective [Unknown]
  - Intentional dose omission [Unknown]
  - Gingival atrophy [Not Recovered/Not Resolved]
  - Memory impairment [Not Recovered/Not Resolved]
  - Ear infection [Unknown]
  - Product dose omission [Unknown]
  - Condition aggravated [Not Recovered/Not Resolved]
  - Balance disorder [Not Recovered/Not Resolved]
  - Weight decreased [Unknown]

NARRATIVE: CASE EVENT DATE: 1969
